FAERS Safety Report 8916122 (Version 2)
Quarter: 2016Q2

REPORT INFORMATION
  Report Type: Spontaneous
  Country: US (occurrence: US)
  Receive Date: 20121120
  Receipt Date: 20160629
  Transmission Date: 20160815
  Serious: Yes (Hospitalization)
  Sender: FDA-Public Use
  Company Number: US-ASTRAZENECA-2012SE85341

PATIENT
  Age: 36 Year
  Sex: Female
  Weight: 72.6 kg

DRUGS (16)
  1. ZYPREXA [Suspect]
     Active Substance: OLANZAPINE
     Route: 065
  2. DEPAKOTE [Concomitant]
     Active Substance: DIVALPROEX SODIUM
  3. KLONOPIN [Concomitant]
     Active Substance: CLONAZEPAM
     Indication: ANXIETY
     Route: 048
     Dates: start: 1996
  4. ULTRAM [Concomitant]
     Active Substance: TRAMADOL HYDROCHLORIDE
     Indication: ARTHRITIS
     Dosage: 50 MG, FOUR TIMES DAILY AS NEEDED
     Route: 048
     Dates: start: 20141222
  5. VITAMIN D [Concomitant]
     Active Substance: CHOLECALCIFEROL
     Indication: ILL-DEFINED DISORDER
     Dosage: DAILY
     Route: 048
  6. PROAIR HFA [Concomitant]
     Active Substance: ALBUTEROL SULFATE
     Indication: ASTHMA
     Dosage: TWO TIMES A DAY
     Route: 055
     Dates: start: 2011
  7. SEROQUEL XR [Suspect]
     Active Substance: QUETIAPINE FUMARATE
     Indication: BIPOLAR DISORDER
     Route: 048
     Dates: start: 1996
  8. SEROQUEL XR [Suspect]
     Active Substance: QUETIAPINE FUMARATE
     Indication: BIPOLAR DISORDER
     Route: 048
  9. MULTIVITAMIN [Concomitant]
     Active Substance: VITAMINS
     Indication: VITAMIN SUPPLEMENTATION
     Dosage: DAILY
     Route: 048
  10. CALCIUM [Concomitant]
     Active Substance: CALCIUM
     Indication: LOWER LIMB FRACTURE
     Route: 048
  11. CALCIUM [Concomitant]
     Active Substance: CALCIUM
     Indication: MENOPAUSE
     Route: 048
  12. TRAZODONE [Concomitant]
     Active Substance: TRAZODONE HYDROCHLORIDE
     Indication: SLEEP DISORDER
     Route: 048
     Dates: start: 201508
  13. SEROQUEL XR [Suspect]
     Active Substance: QUETIAPINE FUMARATE
     Indication: BIPOLAR DISORDER
     Route: 048
  14. BENADRYL [Concomitant]
     Active Substance: DIPHENHYDRAMINE HYDROCHLORIDE
     Indication: HYPERSENSITIVITY
     Dosage: 1.0DF AS REQUIRED
     Route: 048
     Dates: start: 201605
  15. SEROQUEL XR [Suspect]
     Active Substance: QUETIAPINE FUMARATE
     Indication: BIPOLAR DISORDER
     Route: 048
     Dates: start: 2010, end: 201605
  16. VITAMIN B COMPLEX [Concomitant]
     Active Substance: CYANOCOBALAMIN\DEXPANTHENOL\NIACINAMIDE\PYRIDOXINE HYDROCHLORIDE\RIBOFLAVIN 5^-PHOSPHATE SODIUM\THIAMINE HYDROCHLORIDE\VITAMIN B COMPLEX
     Indication: MENTAL DISORDER
     Dosage: DAILY
     Route: 048

REACTIONS (13)
  - Asthma [Unknown]
  - Post-traumatic stress disorder [Unknown]
  - Osteoarthritis [Unknown]
  - Food craving [Unknown]
  - Off label use [Unknown]
  - Gun shot wound [Unknown]
  - Drug dose omission [Unknown]
  - Psychotic behaviour [Unknown]
  - Insomnia [Unknown]
  - Weight increased [Unknown]
  - Femur fracture [Unknown]
  - Feeling abnormal [Unknown]
  - Intentional product misuse [Unknown]

NARRATIVE: CASE EVENT DATE: 1996
